FAERS Safety Report 8361837-X (Version None)
Quarter: 2012Q2

REPORT INFORMATION
  Report Type: 
  Country: None (occurrence: None)
  Receive Date: 20120515
  Receipt Date: 20120504
  Transmission Date: 20120825
  Serious: Yes (Other)
  Sender: FDA-Public Use
  Company Number: US-JNJFOC-20120506689

PATIENT
  Sex: Male

DRUGS (3)
  1. ENBREL [Suspect]
     Indication: PSORIATIC ARTHROPATHY
     Dosage: MONTH 2; MAXIMUM AMOUNT
     Route: 050
  2. REMICADE [Suspect]
     Indication: PSORIATIC ARTHROPATHY
     Dosage: TREATMENT FOR 8 YEARS (DOSE AND DATES UNSPECIFIED)
     Route: 042
  3. HUMIRA [Suspect]
     Indication: PSORIATIC ARTHROPATHY
     Dosage: TREATMENT FOR 2 MONTHS ON UNSPECIFIED DATES

REACTIONS (4)
  - BASAL CELL CARCINOMA [None]
  - PSORIATIC ARTHROPATHY [None]
  - DRUG INEFFECTIVE [None]
  - PYREXIA [None]
